FAERS Safety Report 5750920-0 (Version None)
Quarter: 2008Q2

REPORT INFORMATION
  Report Type: 
  Country: None (occurrence: None)
  Receive Date: 20080528
  Receipt Date: 20080521
  Transmission Date: 20081010
  Serious: Yes (Hospitalization)
  Sender: FDA-Public Use
  Company Number: ES-MERCK-0712ESP00002

PATIENT
  Age: 77 Year
  Sex: Male

DRUGS (4)
  1. INVANZ [Suspect]
     Indication: DIABETIC FOOT
     Route: 042
     Dates: start: 20071121, end: 20071125
  2. ACENOCOUMAROL [Concomitant]
     Indication: ATRIAL FIBRILLATION
     Route: 048
     Dates: end: 20071121
  3. ACENOCOUMAROL [Concomitant]
     Indication: ANTICOAGULANT THERAPY
     Route: 048
     Dates: end: 20071121
  4. ENOXAPARIN SODIUM [Concomitant]
     Indication: ATRIAL FIBRILLATION
     Route: 058
     Dates: start: 20071122

REACTIONS (2)
  - CAROTID ARTERY STENOSIS [None]
  - TOXIC ENCEPHALOPATHY [None]
